FAERS Safety Report 8710902 (Version 2)
Quarter: 2013Q1

REPORT INFORMATION
  Report Type: Spontaneous
  Country: TR (occurrence: None)
  Receive Date: 20120723
  Receipt Date: 20121116
  Transmission Date: 20140127
  Serious: Yes (Life-Threatening)
  Sender: FDA-Public Use
  Company Number: EUS-2012-00476

PATIENT
  Age: 9 Year
  Sex: Female

DRUGS (7)
  1. ASPARAGINASE (UNSPECIFIED) (ASPARAGINASE) [Suspect]
     Indication: T-CELL TYPE ACUTE LEUKAEMIA
     Route: 042
  2. METHOTREXATE (METHOTREXATE) (METHOTREXATE) [Concomitant]
  3. VINCRISTINE (VINCRISTINE) (VINCRISTINE) [Concomitant]
  4. DAUNORUBICIN (DAUNORUBICIN) (DAUNORUBICIN) [Concomitant]
  5. CORTICOSTEROIDS (CORTICOSTEROID NOS) (CORTICOSTEROID NOS) [Concomitant]
  6. ARA-C (CYTARABINE) (CYTARABINE) [Concomitant]
  7. HYDROCORTISONE (HYDROCORTISONE) (HYDROCORTISONE) [Concomitant]

REACTIONS (12)
  - Leukoencephalopathy [None]
  - Superior sagittal sinus thrombosis [None]
  - Multi-organ failure [None]
  - Quadriplegia [None]
  - Loss of consciousness [None]
  - Hypertension [None]
  - Pancytopenia [None]
  - Tachycardia [None]
  - Transaminases increased [None]
  - Blood triglycerides increased [None]
  - Hyperlipidaemia [None]
  - Hypercholesterolaemia [None]
